FAERS Safety Report 5799045-9 (Version None)
Quarter: 2008Q3

REPORT INFORMATION
  Report Type: 
  Country: None (occurrence: None)
  Receive Date: 20080702
  Receipt Date: 20080624
  Transmission Date: 20090109
  Serious: Yes (Life-Threatening, Hospitalization)
  Sender: FDA-Public Use
  Company Number: FR-PFIZER INC-2008015730

PATIENT
  Age: 24 Year
  Sex: Male

DRUGS (6)
  1. TAHOR [Suspect]
     Route: 048
     Dates: start: 20071030, end: 20071130
  2. AMLOR [Suspect]
     Route: 048
     Dates: start: 20071030, end: 20071203
  3. WELLVONE [Suspect]
     Route: 048
     Dates: start: 20071030, end: 20071130
  4. RAMIPRIL [Suspect]
     Route: 048
     Dates: start: 20071030, end: 20071130
  5. ASPIRIN [Suspect]
     Route: 048
     Dates: start: 20071112, end: 20071204
  6. BRISTOPEN [Suspect]
     Dosage: DAILY DOSE:1GRAM-FREQ:EVERY DAY
     Dates: start: 20071101, end: 20071104

REACTIONS (1)
  - TOXIC EPIDERMAL NECROLYSIS [None]
